FAERS Safety Report 18658886 (Version 1)
Quarter: 2020Q4

REPORT INFORMATION
  Report Type: Spontaneous
  Country: US (occurrence: US)
  Receive Date: 20201224
  Receipt Date: 20201224
  Transmission Date: 20210114
  Serious: Yes (Disabling, Other)
  Sender: FDA-Public Use
  Company Number: US-SA-2020SA364058

PATIENT

DRUGS (1)
  1. KEVZARA [Suspect]
     Active Substance: SARILUMAB
     Indication: PSORIATIC ARTHROPATHY
     Dosage: 200 MG, QOW
     Route: 058
     Dates: start: 20201128

REACTIONS (6)
  - Loss of personal independence in daily activities [Unknown]
  - Injection site reaction [Unknown]
  - Product use in unapproved indication [Unknown]
  - Psoriatic arthropathy [Unknown]
  - Headache [Unknown]
  - Pain [Unknown]

NARRATIVE: CASE EVENT DATE: 2020
